FAERS Safety Report 6447939-3 (Version None)
Quarter: 2009Q4

REPORT INFORMATION
  Report Type: 
  Country: None (occurrence: None)
  Receive Date: 20091120
  Receipt Date: 20091113
  Transmission Date: 20100525
  Serious: Yes (Other)
  Sender: FDA-Public Use
  Company Number: RU-JNJFOC-20091105303

PATIENT
  Age: 40 Year
  Sex: Female

DRUGS (9)
  1. IMODIUM [Suspect]
     Route: 065
  2. IMODIUM [Suspect]
     Indication: DIARRHOEA
     Dosage: 1-2 CAPSULES EVERY DAY FOR ABOUT 6 MONTHS
     Route: 065
  3. ENALAPRIL MALEATE [Concomitant]
     Indication: HYPERTENSION
     Route: 065
  4. KARDIKET [Concomitant]
     Indication: CORONARY ARTERY DISEASE
     Dosage: ONCE OR TWICE DAILY
     Route: 065
  5. DROTAVERINE [Concomitant]
     Route: 065
  6. TOFISOPAM [Concomitant]
     Route: 065
  7. ATARAX [Concomitant]
     Route: 065
  8. PHENOBARBITAL [Concomitant]
     Route: 065
  9. VALOCORDIN [Concomitant]
     Route: 065

REACTIONS (10)
  - APATHY [None]
  - CHROMATURIA [None]
  - COORDINATION ABNORMAL [None]
  - FATIGUE [None]
  - HEADACHE [None]
  - INTENTIONAL DRUG MISUSE [None]
  - OEDEMA PERIPHERAL [None]
  - RESPIRATORY DEPRESSION [None]
  - SOMNOLENCE [None]
  - TACHYCARDIA [None]
